FAERS Safety Report 26094040 (Version 2)
Quarter: 2025Q4

REPORT INFORMATION
  Report Type: Spontaneous
  Country: US (occurrence: US)
  Receive Date: 20251126
  Receipt Date: 20251201
  Transmission Date: 20260118
  Serious: Yes (Other)
  Sender: AMGEN
  Company Number: US-AMGEN-USASP2025233871

PATIENT
  Sex: Female

DRUGS (1)
  1. IMDELLTRA [Suspect]
     Active Substance: TARLATAMAB-DLLE
     Indication: Small cell lung cancer
     Dosage: UNK, DAY 1
     Route: 065
     Dates: start: 20251110

REACTIONS (4)
  - Cytokine release syndrome [Unknown]
  - Nausea [Unknown]
  - Neurological symptom [Unknown]
  - Off label use [Unknown]

NARRATIVE: CASE EVENT DATE: 20251101
